FAERS Safety Report 5081246-9 (Version None)
Quarter: 2006Q3

REPORT INFORMATION
  Report Type: 
  Country: None (occurrence: None)
  Receive Date: 20060720
  Receipt Date: 20060309
  Transmission Date: 20061208
  Serious: Yes (Other)
  Sender: FDA-Public Use
  Company Number: 2006034514

PATIENT
  Age: 69 Year
  Sex: Female
  Weight: 69.8539 kg

DRUGS (3)
  1. CELEBREX [Suspect]
     Indication: PAIN IN EXTREMITY
     Dosage: 200 MG (200 MG,1 IN 1 D),ORAL
     Route: 048
     Dates: start: 20060201
  2. CELEBREX [Suspect]
     Indication: SCIATICA
     Dosage: 200 MG (200 MG,1 IN 1 D),ORAL
     Route: 048
     Dates: start: 20060201
  3. ATACAND [Concomitant]

REACTIONS (2)
  - CHEST PAIN [None]
  - SKIN REACTION [None]
